FAERS Safety Report 6527205-8 (Version None)
Quarter: 2010Q1

REPORT INFORMATION
  Report Type: 
  Country: None (occurrence: None)
  Receive Date: 20100104
  Receipt Date: 20100104
  Transmission Date: 20100710
  Serious: Yes (Life-Threatening, Hospitalization, Other)
  Sender: FDA-Public Use
  Company Number: None

PATIENT
  Sex: Male
  Weight: 66.2252 kg

DRUGS (1)
  1. TORADOL [Suspect]
     Indication: PELVIC FRACTURE
     Dosage: ONCE IM
     Route: 030
     Dates: start: 20091228, end: 20091228

REACTIONS (3)
  - LOSS OF CONSCIOUSNESS [None]
  - NIGHTMARE [None]
  - RESPIRATORY ARREST [None]
